FAERS Safety Report 15887550 (Version 1)
Quarter: 2019Q1

REPORT INFORMATION
  Report Type: Spontaneous
  Country: GR (occurrence: GR)
  Receive Date: 20190130
  Receipt Date: 20190130
  Transmission Date: 20190417
  Serious: Yes (Other)
  Sender: FDA-Public Use
  Company Number: GR-ACCORD-103778

PATIENT
  Age: 58 Year
  Sex: Female

DRUGS (4)
  1. LORDIN [Concomitant]
     Active Substance: OMEPRAZOLE
     Indication: PROPHYLAXIS OF NAUSEA AND VOMITING
  2. DEXATON [Concomitant]
     Indication: PROPHYLAXIS OF NAUSEA AND VOMITING
  3. CRUZAFEN [Concomitant]
     Indication: PROPHYLAXIS OF NAUSEA AND VOMITING
  4. CARBOPLATIN. [Suspect]
     Active Substance: CARBOPLATIN
     Indication: CHEMOTHERAPY
     Route: 042

REACTIONS (4)
  - Hypersensitivity [Recovered/Resolved]
  - Flushing [Recovered/Resolved]
  - Dyspnoea [Recovered/Resolved]
  - Choking sensation [Recovered/Resolved]

NARRATIVE: CASE EVENT DATE: 20181005
